FAERS Safety Report 5277698-1 (Version None)
Quarter: 2007Q1

REPORT INFORMATION
  Report Type: 
  Country: None (occurrence: None)
  Receive Date: 20061213
  Receipt Date: 20040701
  Transmission Date: 20070707
  Serious: Yes (Hospitalization)
  Sender: FDA-Public Use
  Company Number: 2004UW13661

PATIENT
  Age: 25 Year
  Sex: Female
  Weight: 68.0396 kg

DRUGS (4)
  1. SEROQUEL [Suspect]
     Indication: INSOMNIA
     Dosage: 110 MG QD PO
     Route: 048
     Dates: start: 20040301, end: 20040601
  2. SEROQUEL [Suspect]
     Indication: INSOMNIA
     Dosage: 2500 MG DAILY PO
     Route: 048
     Dates: start: 20040601, end: 20040601
  3. PROZAC [Concomitant]
  4. KLONOPIN [Concomitant]

REACTIONS (2)
  - DRUG EXPOSURE DURING PREGNANCY [None]
  - OVERDOSE [None]
